FAERS Safety Report 15246185 (Version 1)
Quarter: 2018Q3

REPORT INFORMATION
  Report Type: Spontaneous
  Country: US (occurrence: US)
  Receive Date: 20180713
  Receipt Date: 20180713
  Transmission Date: 20181010
  Serious: No
  Sender: FDA-Public Use
  Company Number: None

PATIENT
  Age: 58 Year
  Sex: Female
  Weight: 63.05 kg

DRUGS (1)
  1. LANTUS INSULIN GLARGINE [Suspect]
     Active Substance: INSULIN GLARGINE
     Indication: TYPE 1 DIABETES MELLITUS
     Dosage: 6/28/18 6 UNITS @ 5 PM?12 UNITS?AM; TYPICALLY 6?PM
     Dates: start: 20180628

REACTIONS (2)
  - Shock hypoglycaemic [None]
  - Therapeutic response shortened [None]

NARRATIVE: CASE EVENT DATE: 20180628
